FAERS Safety Report 24286204 (Version 2)
Quarter: 2024Q4

REPORT INFORMATION
  Report Type: Spontaneous
  Country: JP (occurrence: JP)
  Receive Date: 20240905
  Receipt Date: 20241016
  Transmission Date: 20250115
  Serious: Yes (Hospitalization)
  Sender: PFIZER
  Company Number: JP-PFIZER INC-PV202400115203

PATIENT
  Age: 37 Year
  Sex: Female
  Weight: 41 kg

DRUGS (3)
  1. AZULFIDINE EN-TABS [Suspect]
     Active Substance: SULFASALAZINE
     Indication: Rheumatoid arthritis
     Dosage: 500 MG, 1X/DAY
     Route: 048
     Dates: start: 20240730, end: 20240805
  2. AZULFIDINE EN-TABS [Suspect]
     Active Substance: SULFASALAZINE
     Dosage: 1000 MG, 1X/DAY
     Route: 048
     Dates: start: 20240806, end: 202408
  3. PREDNISOLONE [Concomitant]
     Active Substance: PREDNISOLONE
     Indication: Rheumatoid arthritis
     Dosage: UNK
     Dates: start: 20240730

REACTIONS (3)
  - Erythema [Recovering/Resolving]
  - Hepatic enzyme increased [Recovering/Resolving]
  - Febrile neutropenia [Recovering/Resolving]

NARRATIVE: CASE EVENT DATE: 20240811
